FAERS Safety Report 11582357 (Version 1)
Quarter: 2015Q4

REPORT INFORMATION
  Report Type: Spontaneous
  Country: US (occurrence: US)
  Receive Date: 20151001
  Receipt Date: 20151001
  Transmission Date: 20160304
  Serious: No
  Sender: FDA-Public Use
  Company Number: US-ROCHE-664884

PATIENT
  Age: 67 Year
  Sex: Male

DRUGS (3)
  1. PEGASYS [Suspect]
     Active Substance: PEGINTERFERON ALFA-2A
     Indication: HEPATITIS C
     Dosage: PREFILLED SYRINGE
     Route: 065
  2. CIPRO [Suspect]
     Active Substance: CIPROFLOXACIN HYDROCHLORIDE
     Indication: INFECTION
     Route: 065
  3. RIBAVIRIN. [Suspect]
     Active Substance: RIBAVIRIN
     Indication: HEPATITIS C
     Route: 065

REACTIONS (19)
  - Enteritis infectious [Unknown]
  - Sinusitis [Unknown]
  - Myalgia [Unknown]
  - Injection site erythema [Unknown]
  - Hepatitis C [Unknown]
  - Alopecia [Unknown]
  - Influenza [Unknown]
  - Diarrhoea [Unknown]
  - Rhinorrhoea [Unknown]
  - Dyspnoea [Unknown]
  - Fatigue [Unknown]
  - Asthenia [Unknown]
  - Skin disorder [Unknown]
  - No adverse event [Unknown]
  - Pyrexia [Recovered/Resolved]
  - Rash erythematous [Recovered/Resolved]
  - Ocular hyperaemia [Unknown]
  - Poor quality drug administered [Unknown]
  - Rash erythematous [Unknown]

NARRATIVE: CASE EVENT DATE: 20091014
